FAERS Safety Report 8840831 (Version 2)
Quarter: 2012Q4

REPORT INFORMATION
  Report Type: 
  Country: US (occurrence: US)
  Receive Date: 20121015
  Receipt Date: 20121102
  Transmission Date: 20130627
  Serious: Yes (Death, Hospitalization)
  Sender: FDA-Public Use
  Company Number: US-ROCHE-1141158

PATIENT
  Age: 51 Year
  Sex: Female

DRUGS (2)
  1. CLONAZEPAM [Suspect]
     Indication: PRODUCT USED FOR UNKNOWN INDICATION
     Route: 065
  2. ATIVAN [Suspect]
     Indication: PRODUCT USED FOR UNKNOWN INDICATION
     Route: 065

REACTIONS (6)
  - Urinary bladder rupture [Fatal]
  - Soft tissue haemorrhage [Fatal]
  - Pneumonia aspiration [Unknown]
  - Tachypnoea [Unknown]
  - Hyperhidrosis [Unknown]
  - Pain [Unknown]
